FAERS Safety Report 19772352 (Version 1)
Quarter: 2021Q3

REPORT INFORMATION
  Report Type: Spontaneous
  Country: CN (occurrence: CN)
  Receive Date: 20210901
  Receipt Date: 20210901
  Transmission Date: 20211014
  Serious: Yes (Other)
  Sender: FDA-Public Use
  Company Number: CN-BAYER-2021-190123

PATIENT
  Age: 52 Year
  Sex: Female

DRUGS (1)
  1. MIRENA [Suspect]
     Active Substance: LEVONORGESTREL
     Dosage: 20 ?G PER DAY, CONTINUOUSLY
     Route: 015
     Dates: start: 20190221

REACTIONS (6)
  - Complication of device removal [None]
  - Product shape issue [None]
  - Device breakage [None]
  - Device dislocation [None]
  - Device use issue [None]
  - Device difficult to use [None]

NARRATIVE: CASE EVENT DATE: 20210708
